FAERS Safety Report 7073933-8 (Version None)
Quarter: 2010Q4

REPORT INFORMATION
  Report Type: 
  Country: None (occurrence: None)
  Receive Date: 20101029
  Receipt Date: 20101019
  Transmission Date: 20110411
  Serious: Yes (Hospitalization)
  Sender: FDA-Public Use
  Company Number: US-JNJFOC-20101006559

PATIENT
  Sex: Male
  Weight: 76 kg

DRUGS (4)
  1. ACETAMINOPHEN [Suspect]
     Route: 048
  2. ACETAMINOPHEN [Suspect]
     Indication: PRODUCT USED FOR UNKNOWN INDICATION
     Route: 048
  3. ALL OTHER NON-THERAPEUTIC PRODUCTS [Suspect]
     Indication: PRODUCT USED FOR UNKNOWN INDICATION
  4. ALL OTHER NON-THERAPEUTIC PRODUCTS [Suspect]

REACTIONS (6)
  - ACUTE HEPATIC FAILURE [None]
  - COAGULOPATHY [None]
  - GASTROINTESTINAL NECROSIS [None]
  - INTENTIONAL OVERDOSE [None]
  - RENAL INJURY [None]
  - SUICIDE ATTEMPT [None]
